FAERS Safety Report 8336168-4 (Version None)
Quarter: 2012Q1

REPORT INFORMATION
  Report Type: 
  Country: None (occurrence: None)
  Receive Date: 20120329
  Receipt Date: 20100112
  Transmission Date: 20120608
  Serious: Yes (Hospitalization)
  Sender: FDA-Public Use
  Company Number: PHHY2010US01924

PATIENT
  Sex: Male

DRUGS (1)
  1. EXELON [Suspect]
     Dosage: 9.5 MG, TRANSDERMAL
     Route: 062

REACTIONS (3)
  - WEIGHT DECREASED [None]
  - MALAISE [None]
  - DECREASED APPETITE [None]
